FAERS Safety Report 6833615-1 (Version None)
Quarter: 2010Q3

REPORT INFORMATION
  Report Type: 
  Country: None (occurrence: None)
  Receive Date: 20100712
  Receipt Date: 20070329
  Transmission Date: 20110219
  Serious: No
  Sender: FDA-Public Use
  Company Number: US-PFIZER INC-2007027409

PATIENT
  Sex: Male
  Weight: 83.91 kg

DRUGS (7)
  1. CHANTIX [Suspect]
     Indication: SMOKING CESSATION THERAPY
     Dates: start: 20070201, end: 20070323
  2. TOPROL-XL [Concomitant]
     Indication: HYPERTENSION
  3. DIOVAN HCT [Concomitant]
  4. METFORMIN HCL [Concomitant]
  5. BYETTA [Concomitant]
  6. GLIPIZIDE [Concomitant]
  7. DRUG, UNSPECIFIED [Concomitant]

REACTIONS (4)
  - ABDOMINAL PAIN UPPER [None]
  - ABNORMAL DREAMS [None]
  - INSOMNIA [None]
  - NAUSEA [None]
